FAERS Safety Report 21602473 (Version 1)
Quarter: 2022Q4

REPORT INFORMATION
  Report Type: Report from Study
  Country: US (occurrence: US)
  Receive Date: 20221116
  Receipt Date: 20221116
  Transmission Date: 20230113
  Serious: No
  Sender: FDA-Public Use
  Company Number: US-ABBVIE-4198630

PATIENT
  Age: 61 Year
  Sex: Female
  Weight: 65.317 kg

DRUGS (1)
  1. SYNTHROID [Suspect]
     Active Substance: LEVOTHYROXINE SODIUM
     Indication: Hypothyroidism
     Dosage: 100 MICROGRAM?FORM STRENGTH: 100 MILLIGRAM
     Route: 048
     Dates: start: 2003, end: 20221107

REACTIONS (24)
  - Abdominal discomfort [Recovering/Resolving]
  - Joint noise [Recovering/Resolving]
  - Vulvovaginal discomfort [Recovering/Resolving]
  - Flatulence [Recovering/Resolving]
  - Depressed mood [Not Recovered/Not Resolved]
  - Confusional state [Recovering/Resolving]
  - Infrequent bowel movements [Recovering/Resolving]
  - Feeling abnormal [Recovering/Resolving]
  - Bladder pain [Recovering/Resolving]
  - Loss of personal independence in daily activities [Recovering/Resolving]
  - Gastrointestinal tract irritation [Recovering/Resolving]
  - Rectal discharge [Recovering/Resolving]
  - Gait inability [Recovering/Resolving]
  - Gastric dilatation [Recovering/Resolving]
  - Dyspepsia [Recovering/Resolving]
  - Swelling [Recovering/Resolving]
  - Burning sensation [Recovering/Resolving]
  - Paranoia [Not Recovered/Not Resolved]
  - Mobility decreased [Recovering/Resolving]
  - Pain [Recovering/Resolving]
  - Inflammation [Recovering/Resolving]
  - Polyuria [Recovering/Resolving]
  - Back pain [Recovering/Resolving]
  - Feeling abnormal [Not Recovered/Not Resolved]

NARRATIVE: CASE EVENT DATE: 20220830
